FAERS Safety Report 16545978 (Version 1)
Quarter: 2019Q3

REPORT INFORMATION
  Report Type: Spontaneous
  Country: IT (occurrence: IT)
  Receive Date: 20190709
  Receipt Date: 20190709
  Transmission Date: 20191004
  Serious: Yes (Hospitalization)
  Sender: FDA-Public Use
  Company Number: IT-SA-2019SA182450

PATIENT
  Age: 76 Year
  Sex: Female

DRUGS (1)
  1. CLEXANE T [Suspect]
     Active Substance: ENOXAPARIN SODIUM
     Indication: THROMBOSIS
     Dosage: 12000 KIU, QD
     Route: 058

REACTIONS (3)
  - Fall [Recovering/Resolving]
  - Injury [Recovering/Resolving]
  - Subarachnoid haematoma [Recovering/Resolving]

NARRATIVE: CASE EVENT DATE: 20190210
